FAERS Safety Report 6576763-6 (Version None)
Quarter: 2010Q1

REPORT INFORMATION
  Report Type: 
  Country: None (occurrence: None)
  Receive Date: 20100210
  Receipt Date: 20100128
  Transmission Date: 20100710
  Serious: Yes (Death)
  Sender: FDA-Public Use
  Company Number: GB-ELI_LILLY_AND_COMPANY-GB201001005685

PATIENT
  Age: 42 Year
  Sex: Female

DRUGS (4)
  1. PROZAC [Suspect]
     Dosage: 20 MG, DAILY (1/D)
     Route: 065
  2. THIORIDAZINE HCL [Concomitant]
     Dosage: UNK, DAILY (1/D)
     Route: 065
  3. TRIMIPRAMINE [Concomitant]
     Dosage: UNK, DAILY (1/D)
     Route: 065
  4. ALCOHOL [Concomitant]
     Dosage: UNK, UNKNOWN
     Route: 065

REACTIONS (3)
  - ALCOHOL INTERACTION [None]
  - DEATH [None]
  - DRUG INTERACTION [None]
